FAERS Safety Report 16299325 (Version 2)
Quarter: 2020Q1

REPORT INFORMATION
  Report Type: Report from Study
  Country: GB (occurrence: GB)
  Receive Date: 20190510
  Receipt Date: 20200214
  Transmission Date: 20200409
  Serious: Yes (Hospitalization)
  Sender: FDA-Public Use
  Company Number: GB-PFIZER INC-2019194204

PATIENT
  Age: 38 Year
  Sex: Female

DRUGS (9)
  1. PERTUZUMAB. [Suspect]
     Active Substance: PERTUZUMAB
     Indication: HER-2 POSITIVE BREAST CANCER
     Dosage: 420 MG, EVERY 3 WEEKS (MAINTENANCE DOSE)
     Route: 042
     Dates: start: 20160811
  2. DOCETAXEL. [Suspect]
     Active Substance: DOCETAXEL
     Indication: HER-2 POSITIVE BREAST CANCER
     Dosage: 105 MG, EVERY 3 WEEKS (DOSE MODIFIED DUE TO MUSCULOSKELETAL SYMPTOMS)
     Route: 042
     Dates: start: 20160723, end: 20160723
  3. DOCETAXEL. [Suspect]
     Active Substance: DOCETAXEL
     Dosage: 190 MG, EVERY 3 WEEKS (DOSE DISCONTINUED AS PLANNED NUMBER OF CYCLES COMPLETED )
     Route: 042
     Dates: start: 20160902, end: 20161115
  4. PERTUZUMAB. [Suspect]
     Active Substance: PERTUZUMAB
     Dosage: 840 MG, SINGLE (LOADING DOSE MODIFIED AS SWITCHED TO MAINTENANCE DOSE )
     Route: 042
     Dates: start: 20160721, end: 20160721
  5. TRASTUZUMAB. [Suspect]
     Active Substance: TRASTUZUMAB
     Indication: HER-2 POSITIVE BREAST CANCER
     Dosage: 420 MG, EVERY 3 WEEKS (DOSE MODIFIED AS ACCOUNT FOR WEIGHT CHANGE)
     Route: 042
     Dates: start: 20160812, end: 20161017
  6. TRASTUZUMAB. [Suspect]
     Active Substance: TRASTUZUMAB
     Dosage: 567 MG, SINGLE (SINGLE LOADING DOSE MODIFIED AS SWITCHED TO MAINTENANCE DOSE )
     Route: 042
     Dates: start: 20160722, end: 20160722
  7. DOCETAXEL. [Suspect]
     Active Substance: DOCETAXEL
     Dosage: 140 MG, EVERY 3 WEEKS (DISCONTINUED DUE TO MUSCULOSKELETAL SYMPTOMS)
     Route: 042
     Dates: start: 20160812, end: 20160812
  8. TRASTUZUMAB. [Suspect]
     Active Substance: TRASTUZUMAB
     Dosage: 441 MG, EVERY 3 WEEKS
     Route: 042
     Dates: start: 20161115
  9. DENOSUMAB [Concomitant]
     Active Substance: DENOSUMAB
     Indication: METASTASES TO BONE
     Dosage: 120 MG, EVERY 3 WEEKS
     Route: 042
     Dates: start: 20160721

REACTIONS (2)
  - Pyrexia [Recovered/Resolved]
  - Headache [Recovered/Resolved]

NARRATIVE: CASE EVENT DATE: 20190113
